FAERS Safety Report 16773908 (Version 1)
Quarter: 2019Q3

REPORT INFORMATION
  Report Type: Spontaneous
  Country: CN (occurrence: CN)
  Receive Date: 20190904
  Receipt Date: 20190904
  Transmission Date: 20191005
  Serious: Yes (Other)
  Sender: FDA-Public Use
  Company Number: CN-BAXTER-2019BAX017402

PATIENT
  Age: 60 Year
  Sex: Female
  Weight: 53 kg

DRUGS (8)
  1. ENDOXAN [Suspect]
     Active Substance: CYCLOPHOSPHAMIDE
     Dosage: DOSE RE-INTRODUCED; CYCLE 2 EC-TH PROTOCOL, CYCLOPHOSPHAMIDE + SODIUM CHLORIDE
     Route: 041
     Dates: start: 20190814, end: 20190814
  2. 0.9% SODIUM CHLORIDE INJECTION [Suspect]
     Active Substance: SODIUM CHLORIDE
     Dosage: DOSE RE-INTRODUCED; CYCLE 2 EC-TH PROTOCOL, CYCLOPHOSPHAMIDE + SODIUM CHLORIDE
     Route: 041
     Dates: start: 20190814, end: 20190814
  3. 0.9% SODIUM CHLORIDE INJECTION [Suspect]
     Active Substance: SODIUM CHLORIDE
     Indication: MEDICATION DILUTION
     Dosage: CYCLE 1 OF EC-TH PROTOCOL, CYCLOPHOSPHAMIDE 0.8 G + SODIUM CHLORIDE
     Route: 041
     Dates: start: 20190730, end: 20190730
  4. PHARMORUBICIN RD [Suspect]
     Active Substance: EPIRUBICIN
     Indication: BREAST CANCER FEMALE
     Dosage: CYCLE 1 OF EC-TH PROTOCOL, EPIRUBICIN + SODIUM CHLORIDE 150 ML
     Route: 041
     Dates: start: 20190730, end: 20190730
  5. SODIUM CHLORIDE. [Suspect]
     Active Substance: SODIUM CHLORIDE
     Indication: MEDICATION DILUTION
     Dosage: CYCLE 1 OF EC-TH PROTOCOL, EPIRUBICIN + SODIUM CHLORIDE 150 ML
     Route: 041
     Dates: start: 20190730, end: 20190730
  6. PHARMORUBICIN RD [Suspect]
     Active Substance: EPIRUBICIN
     Dosage: DOSE RE-INTRODUCED; CYCLE 2 EC-TH PROTOCOL, EPIRUBICIN + SODIUM CHLORIDE
     Route: 041
     Dates: start: 20190814, end: 20190814
  7. ENDOXAN [Suspect]
     Active Substance: CYCLOPHOSPHAMIDE
     Indication: BREAST CANCER FEMALE
     Dosage: CYCLE 1 OF EC-TH PROTOCOL, CYCLOPHOSPHAMIDE + SODIUM CHLORIDE 100 ML
     Route: 041
     Dates: start: 20190730, end: 20190730
  8. SODIUM CHLORIDE. [Suspect]
     Active Substance: SODIUM CHLORIDE
     Dosage: DOSE RE-INTRODUCED; CYCLE 2 EC-TH PROTOCOL, EPIRUBICIN + SODIUM CHLORIDE
     Route: 041
     Dates: start: 20190814, end: 20190814

REACTIONS (3)
  - Neutropenia [Recovered/Resolved]
  - Bone marrow failure [Recovered/Resolved]
  - Leukopenia [Recovered/Resolved]

NARRATIVE: CASE EVENT DATE: 20190813
